FAERS Safety Report 8910827 (Version 1)
Quarter: 2012Q4

REPORT INFORMATION
  Report Type: 
  Country: GB (occurrence: GB)
  Receive Date: 20121116
  Receipt Date: 20121116
  Transmission Date: 20130627
  Serious: Yes (Life-Threatening, Hospitalization)
  Sender: FDA-Public Use
  Company Number: GB-PFIZER INC-GBWYE166502NOV04

PATIENT
  Age: 80 Year
  Sex: Female
  Weight: 80 kg

DRUGS (11)
  1. ADVIL [Suspect]
     Indication: PAIN
     Dosage: 400 mg, 3x/day
     Route: 048
     Dates: start: 20040809, end: 20040811
  2. CLEXANE [Suspect]
     Indication: THROMBOSIS PROPHYLAXIS
     Dosage: 400 mg
     Route: 058
     Dates: start: 20040809, end: 20040814
  3. RAMIPRIL [Suspect]
     Indication: HYPERTENSION
     Dosage: 10 mg, 1x/day
     Route: 048
     Dates: end: 20040811
  4. FUROSEMIDE [Suspect]
     Indication: CARDIAC FAILURE
     Dosage: 40 mg, 1x/day
     Route: 048
  5. FUROSEMIDE [Suspect]
     Indication: OEDEMA
  6. HEPARIN-FRACTION, SODIUM SALT [Suspect]
     Indication: THROMBOSIS PROPHYLAXIS
     Dosage: UNK
     Route: 058
     Dates: start: 20040809, end: 20040814
  7. SERETIDE [Concomitant]
     Route: 055
  8. NYSTATIN [Concomitant]
     Dosage: 1 ml, 4x/day
     Route: 048
  9. PARACETAMOL [Concomitant]
     Dosage: 1 g, 4x/day
     Route: 048
  10. FLUCLOXACILLIN [Concomitant]
     Dosage: UNK
     Dates: start: 20040816, end: 20040823
  11. BENZYLPENICILLIN [Concomitant]
     Dosage: UNK
     Dates: start: 20040816, end: 20040823

REACTIONS (9)
  - Oesophagitis [Recovered/Resolved]
  - Hiatus hernia [Recovered/Resolved]
  - Gastritis [Recovered/Resolved]
  - Gastric ulcer [Recovered/Resolved]
  - Duodenal ulcer haemorrhage [Recovered/Resolved]
  - Duodenitis [Recovered/Resolved]
  - Renal failure acute [Recovered/Resolved]
  - Sepsis [Unknown]
  - Dehydration [Unknown]
